FAERS Safety Report 20909665 (Version 1)
Quarter: 2022Q2

REPORT INFORMATION
  Report Type: Spontaneous
  Country: FR (occurrence: FR)
  Receive Date: 20220603
  Receipt Date: 20220603
  Transmission Date: 20220720
  Serious: Yes (Other)
  Sender: FDA-Public Use
  Company Number: FR-009507513-2205FRA004419

PATIENT
  Age: 65 Year
  Sex: Female

DRUGS (2)
  1. AVASTIN [Suspect]
     Active Substance: BEVACIZUMAB
     Indication: Ovarian cancer stage IV
     Route: 065
  2. OLAPARIB [Suspect]
     Active Substance: OLAPARIB
     Indication: Ovarian cancer stage IV
     Route: 048

REACTIONS (4)
  - Ototoxicity [Unknown]
  - Rhinitis [Unknown]
  - Pyrexia [Not Recovered/Not Resolved]
  - Chalazion [Unknown]

NARRATIVE: CASE EVENT DATE: 20220312
